FAERS Safety Report 8387734-1 (Version None)
Quarter: 2012Q2

REPORT INFORMATION
  Report Type: 
  Country: None (occurrence: None)
  Receive Date: 20120525
  Receipt Date: 20120515
  Transmission Date: 20120825
  Serious: Yes (Hospitalization)
  Sender: FDA-Public Use
  Company Number: US-GLAXOSMITHKLINE-A0822149A

PATIENT
  Age: 46 Year
  Sex: Female
  Weight: 96.8 kg

DRUGS (1)
  1. AVANDIA [Suspect]
     Indication: TYPE 2 DIABETES MELLITUS
     Dosage: 4MG PER DAY
     Route: 048
     Dates: start: 20010101, end: 20070114

REACTIONS (8)
  - EMOTIONAL DISTRESS [None]
  - PARALYSIS [None]
  - CEREBROVASCULAR ACCIDENT [None]
  - BRAIN INJURY [None]
  - PALPITATIONS [None]
  - TRANSIENT ISCHAEMIC ATTACK [None]
  - DISABILITY [None]
  - NERVE INJURY [None]
